FAERS Safety Report 7226115-0 (Version None)
Quarter: 2011Q1

REPORT INFORMATION
  Report Type: 
  Country: None (occurrence: None)
  Receive Date: 20110114
  Receipt Date: 20081117
  Transmission Date: 20110831
  Serious: Yes (Hospitalization, Other)
  Sender: FDA-Public Use
  Company Number: PHHY2008FR29028

PATIENT
  Sex: Female

DRUGS (2)
  1. EXJADE [Suspect]
     Indication: IRON OVERLOAD
     Dosage: 500 MG/DAY
     Dates: start: 20060101
  2. EXJADE [Suspect]
     Dosage: 250 MG/DAY

REACTIONS (6)
  - HYPERSPLENISM [None]
  - SERUM FERRITIN INCREASED [None]
  - SPLENOMEGALY [None]
  - HEPATITIS ACUTE [None]
  - HEPATIC SIDEROSIS [None]
  - HEPATIC FIBROSIS [None]
